FAERS Safety Report 4684152-4 (Version None)
Quarter: 2005Q2

REPORT INFORMATION
  Report Type: 
  Country: None (occurrence: None)
  Receive Date: 20050607
  Receipt Date: 20050603
  Transmission Date: 20051028
  Serious: Yes (Other)
  Sender: FDA-Public Use
  Company Number: US-GLAXOSMITHKLINE-A0561139A

PATIENT
  Age: 59 Year
  Sex: Female

DRUGS (10)
  1. ADVAIR DISKUS 100/50 [Suspect]
     Indication: ASTHMA
     Dosage: 1PUFF TWICE PER DAY
     Route: 055
  2. TEGRETOL [Concomitant]
  3. ALBUTEROL [Concomitant]
  4. NEXIUM [Concomitant]
  5. COGENTIN [Concomitant]
  6. LITHIUM [Concomitant]
  7. HALDOL [Concomitant]
  8. LIPITOR [Concomitant]
  9. ALLEGRA [Concomitant]
  10. FLONASE [Concomitant]

REACTIONS (1)
  - CONVULSION [None]
